FAERS Safety Report 8159489-7 (Version None)
Quarter: 2012Q1

REPORT INFORMATION
  Report Type: 
  Country: None (occurrence: None)
  Receive Date: 20120223
  Receipt Date: 20120210
  Transmission Date: 20120608
  Serious: Yes (Hospitalization, Congenital Anomaly)
  Sender: FDA-Public Use
  Company Number: DE-UCBSA-051267

PATIENT
  Age: 24 Hour
  Sex: Female
  Weight: 1.97 kg

DRUGS (5)
  1. MARCUMAR [Concomitant]
     Indication: THROMBOSIS PROPHYLAXIS
     Dosage: 0-4 GESTATIONAL WEEK
     Route: 064
     Dates: end: 20100101
  2. ENOXAPARIN SODIUM [Concomitant]
     Indication: THROMBOSIS PROPHYLAXIS
     Dosage: DAILY DOSE:40MG; 4-32.4 GESTATIONAL WEEK
     Route: 064
     Dates: start: 20100101, end: 20110511
  3. KEPPRA [Suspect]
     Indication: EPILEPSY
     Dosage: 0-32.4 GESTATIONAL WEEK
     Route: 064
     Dates: start: 20101009, end: 20110511
  4. BETAMETHASONE [Concomitant]
     Indication: MATERNAL THERAPY TO ENHANCE FOETAL LUNG MATURITY
     Dosage: 32.1-32.2 GESTATIONAL WEEK
     Route: 064
     Dates: start: 20110508, end: 20110509
  5. FOLASAURE [Concomitant]
     Indication: PROPHYLAXIS OF NEURAL TUBE DEFECT
     Dosage: 4-12 GESTATIONAL WEEK
     Route: 064
     Dates: start: 20100101, end: 20100101

REACTIONS (4)
  - FACIAL PARESIS [None]
  - ILEAL ATRESIA [None]
  - PREMATURE BABY [None]
  - FOETAL EXPOSURE DURING PREGNANCY [None]
